FAERS Safety Report 8113790 (Version 3)
Quarter: 2013Q1

REPORT INFORMATION
  Report Type: Spontaneous
  Country: CA (occurrence: None)
  Receive Date: 20110819
  Receipt Date: 20130320
  Transmission Date: 20140127
  Serious: Yes (Other)
  Sender: FDA-Public Use
  Company Number: 1009354

PATIENT
  Age: 62 Year
  Sex: Female
  Weight: 71.6 kg

DRUGS (1)
  1. PACLITAXEL [Suspect]
     Indication: BREAST CANCER
     Route: 042
     Dates: start: 20110712, end: 20110712

REACTIONS (2)
  - Throat tightness [None]
  - Dyspnoea [None]
